FAERS Safety Report 5775457-4 (Version None)
Quarter: 2008Q2

REPORT INFORMATION
  Report Type: 
  Country: None (occurrence: None)
  Receive Date: 20080617
  Receipt Date: 20080606
  Transmission Date: 20081010
  Serious: Yes (Other)
  Sender: FDA-Public Use
  Company Number: PHHY2008BR10343

PATIENT
  Sex: Male
  Weight: 74 kg

DRUGS (2)
  1. VOLTAREN [Suspect]
     Indication: BONE PAIN
     Dosage: 50 MG, 1 TAB EVERY 8 HOURS
     Route: 048
  2. IMIPRAMINE HYDROCHLORIDE [Concomitant]
     Dosage: I TAB AT NIGHT

REACTIONS (1)
  - ERECTILE DYSFUNCTION [None]
